FAERS Safety Report 21507137 (Version 1)
Quarter: 2022Q4

REPORT INFORMATION
  Report Type: Spontaneous
  Country: EG (occurrence: None)
  Receive Date: 20221026
  Receipt Date: 20221026
  Transmission Date: 20230112
  Serious: Yes (Other)
  Sender: FDA-Public Use
  Company Number: EG-Hikma Pharmaceuticals-EG-H14001-22-02750

PATIENT
  Sex: Female

DRUGS (2)
  1. CARBOPLATIN [Suspect]
     Active Substance: CARBOPLATIN
     Indication: Neoplasm malignant
     Route: 041
     Dates: start: 20210629
  2. PACLITAXEL [Concomitant]
     Active Substance: PACLITAXEL
     Indication: Neoplasm malignant
     Route: 041

REACTIONS (2)
  - Dyspnoea [Not Recovered/Not Resolved]
  - Anaphylactic shock [Not Recovered/Not Resolved]

NARRATIVE: CASE EVENT DATE: 20210629
